FAERS Safety Report 21455243 (Version 2)
Quarter: 2022Q4

REPORT INFORMATION
  Report Type: Spontaneous
  Country: TN (occurrence: TN)
  Receive Date: 20221014
  Receipt Date: 20221209
  Transmission Date: 20230112
  Serious: Yes (Death)
  Sender: FDA-Public Use
  Company Number: TN-Clinigen Group PLC/ Clinigen Healthcare Ltd-TN-CLGN-22-00452

PATIENT

DRUGS (1)
  1. INTERFERON GAMMA [Suspect]
     Active Substance: INTERFERON GAMMA
     Indication: Product used for unknown indication

REACTIONS (1)
  - Death [Fatal]
